FAERS Safety Report 8816809 (Version 1)
Quarter: 2012Q4

REPORT INFORMATION
  Report Type: Spontaneous
  Country: GB (occurrence: None)
  Receive Date: 20121001
  Receipt Date: 20121001
  Transmission Date: 20130627
  Serious: Yes (Other)
  Sender: FDA-Public Use
  Company Number: 2012-01399

PATIENT
  Age: 79 Year
  Sex: Female
  Weight: 65 kg

DRUGS (3)
  1. LOSARTAN [Suspect]
     Indication: DRUG USE FOR UNKNOWN INDICATION
     Route: 048
     Dates: start: 20120814
  2. BENDROFLUAZIDE [Concomitant]
  3. BISOPROLOL (UNKNOWN) [Concomitant]

REACTIONS (3)
  - Myalgia [None]
  - Visual impairment [None]
  - Dizziness [None]
